FAERS Safety Report 15339680 (Version 1)
Quarter: 2018Q3

REPORT INFORMATION
  Report Type: Spontaneous
  Country: JP (occurrence: JP)
  Receive Date: 20180831
  Receipt Date: 20180831
  Transmission Date: 20181010
  Serious: Yes (Hospitalization, Other)
  Sender: FDA-Public Use
  Company Number: PHHY2018JP079346

PATIENT
  Age: 44 Year
  Sex: Male
  Weight: 66.5 kg

DRUGS (13)
  1. OXALIPLATIN. [Suspect]
     Active Substance: OXALIPLATIN
     Indication: RECTAL CANCER RECURRENT
     Dosage: 130 MG/M2,  6 COURSES
     Route: 065
     Dates: start: 201102
  2. CETUXIMAB. [Suspect]
     Active Substance: CETUXIMAB
     Indication: MALIGNANT NEOPLASM PROGRESSION
  3. IRINOTECAN [Suspect]
     Active Substance: IRINOTECAN
     Indication: MALIGNANT NEOPLASM PROGRESSION
  4. OXALIPLATIN. [Suspect]
     Active Substance: OXALIPLATIN
     Dosage: 85 MG/M2, UNK
     Route: 065
  5. CALCIUM FOLINATE [Suspect]
     Active Substance: LEUCOVORIN CALCIUM
     Indication: RECTAL CANCER
     Dosage: 200 MG/M2, BIW, TOTAL OF 15 COURSES
     Route: 065
  6. CALCIUM FOLINATE [Suspect]
     Active Substance: LEUCOVORIN CALCIUM
     Indication: MALIGNANT NEOPLASM PROGRESSION
     Dosage: 200 MG/M2, UNK
     Route: 065
  7. BEVACIZUMAB. [Suspect]
     Active Substance: BEVACIZUMAB
     Indication: RECTAL CANCER RECURRENT
     Dosage: 7.5 MG/M2, UNK,  6 COURSES
     Route: 065
     Dates: start: 201102
  8. IRINOTECAN [Suspect]
     Active Substance: IRINOTECAN
     Indication: RECTAL CANCER
     Dosage: 150 MG/M2, BIW, TOTAL OF 15 COURSES
     Route: 065
  9. 5 FLUORO URACIL [Suspect]
     Active Substance: FLUOROURACIL
     Indication: MALIGNANT NEOPLASM PROGRESSION
  10. CAPECITABINE. [Suspect]
     Active Substance: CAPECITABINE
     Indication: RECTAL CANCER RECURRENT
     Dosage: 2000 MG/M2, QD,  6 COURSES
     Route: 065
     Dates: start: 201102
  11. CETUXIMAB. [Suspect]
     Active Substance: CETUXIMAB
     Indication: RECTAL CANCER
     Dosage: 500 MG/M2, BIW, TOTAL OF 15 COURSES
     Route: 065
  12. BEVACIZUMAB. [Suspect]
     Active Substance: BEVACIZUMAB
     Dosage: 5 MG/KG, UNK
     Route: 065
  13. 5 FLUORO URACIL [Suspect]
     Active Substance: FLUOROURACIL
     Indication: RECTAL CANCER
     Dosage: 400 MG/M2, UNK, BOLUS, BIW, TOTAL OF 15 COURSES, CONTINUOUS 2,400 MG/M2
     Route: 065

REACTIONS (9)
  - Hydronephrosis [Unknown]
  - Rectal cancer [Unknown]
  - Palmar-plantar erythrodysaesthesia syndrome [Unknown]
  - Drug ineffective [Unknown]
  - Pyrexia [Unknown]
  - Renal impairment [Unknown]
  - Malignant neoplasm progression [Unknown]
  - Hypersensitivity [Unknown]
  - Inflammation [Unknown]

NARRATIVE: CASE EVENT DATE: 201405
